FAERS Safety Report 8350633-5 (Version None)
Quarter: 2012Q2

REPORT INFORMATION
  Report Type: 
  Country: None (occurrence: None)
  Receive Date: 20120510
  Receipt Date: 20120502
  Transmission Date: 20120825
  Serious: Yes (Hospitalization, Other)
  Sender: FDA-Public Use
  Company Number: US-MERCK-1111USA03162

PATIENT
  Age: 53 Year
  Sex: Female

DRUGS (6)
  1. BONIVA [Concomitant]
     Route: 065
     Dates: start: 19990101, end: 20090101
  2. ALENDRONATE SODIUM [Suspect]
     Route: 048
     Dates: start: 20081201
  3. FOSAMAX [Suspect]
     Route: 048
     Dates: start: 19990101, end: 20090101
  4. ALENDRONATE SODIUM [Suspect]
     Route: 048
     Dates: start: 19980501
  5. ACTONEL [Concomitant]
     Route: 065
     Dates: start: 19990101, end: 20090101
  6. FOSAMAX [Suspect]
     Route: 048
     Dates: start: 20110701

REACTIONS (21)
  - UTERINE DISORDER [None]
  - LOWER LIMB FRACTURE [None]
  - FALL [None]
  - CEREBROVASCULAR ACCIDENT [None]
  - CORONARY ARTERY DISEASE [None]
  - ANAEMIA OF CHRONIC DISEASE [None]
  - PAIN [None]
  - LIMB DEFORMITY [None]
  - ACCIDENT [None]
  - LIGAMENT SPRAIN [None]
  - ROAD TRAFFIC ACCIDENT [None]
  - HYPOTENSION [None]
  - UPPER LIMB FRACTURE [None]
  - ADVERSE EVENT [None]
  - LACERATION [None]
  - FEMUR FRACTURE [None]
  - BACK PAIN [None]
  - CHRONIC OBSTRUCTIVE PULMONARY DISEASE [None]
  - HAEMORRHAGE [None]
  - DRUG DOSE OMISSION [None]
  - CEREBROVASCULAR DISORDER [None]
